FAERS Safety Report 19178777 (Version 1)
Quarter: 2021Q2

REPORT INFORMATION
  Report Type: Spontaneous
  Country: US (occurrence: US)
  Receive Date: 20210421
  Receipt Date: 20210421
  Transmission Date: 20210717
  Serious: Yes (Hospitalization)
  Sender: FDA-Public Use
  Company Number: None

PATIENT
  Age: 50 Year
  Sex: Male
  Weight: 84.6 kg

DRUGS (3)
  1. TIZANIDINE. [Concomitant]
     Active Substance: TIZANIDINE
  2. OCREVUS [Suspect]
     Active Substance: OCRELIZUMAB
     Indication: MULTIPLE SCLEROSIS
     Route: 042
     Dates: start: 20210420
  3. HYDROCODONE/ACETAAMINOPHEN [Concomitant]

REACTIONS (4)
  - Erythema [None]
  - Infusion related reaction [None]
  - Pharyngeal swelling [None]
  - Swelling face [None]

NARRATIVE: CASE EVENT DATE: 20210420
